FAERS Safety Report 7881517-4 (Version None)
Quarter: 2011Q4

REPORT INFORMATION
  Report Type: 
  Country: None (occurrence: None)
  Receive Date: 20111101
  Receipt Date: 20111026
  Transmission Date: 20120403
  Serious: Yes (Hospitalization)
  Sender: FDA-Public Use
  Company Number: BR-GILEAD-2011-0045894

PATIENT
  Sex: Male

DRUGS (4)
  1. TENOFOVIR DISOPROXIL FUMARATE [Suspect]
     Indication: HIV INFECTION
  2. LAMIVUDINE [Concomitant]
     Indication: HIV INFECTION
  3. RIFAMPIN [Concomitant]
     Indication: TUBERCULOSIS
  4. RALTEGRAVIR [Concomitant]
     Indication: HIV INFECTION

REACTIONS (1)
  - HYPERTENSIVE CRISIS [None]
